FAERS Safety Report 4609787-6 (Version None)
Quarter: 2005Q1

REPORT INFORMATION
  Report Type: 
  Country: None (occurrence: None)
  Receive Date: 20050314
  Receipt Date: 20050301
  Transmission Date: 20050727
  Serious: Yes (Hospitalization)
  Sender: FDA-Public Use
  Company Number: 2004-115208-NL

PATIENT
  Age: 39 Year
  Sex: Female

DRUGS (4)
  1. FOLLITROPIN BETA [Suspect]
     Indication: IN VITRO FERTILISATION
     Dosage: 300 IU QD SUBCUTANEOUS
     Route: 058
     Dates: start: 20040401, end: 20040404
  2. FOLLITROPIN ALFA [Suspect]
     Indication: IN VITRO FERTILISATION
     Dosage: 300 IU QD SUBCUTANEOUS
     Route: 058
     Dates: start: 20040405, end: 20040407
  3. FOLLITROPIN ALFA [Suspect]
     Indication: IN VITRO FERTILISATION
     Dosage: 300 IU QD SUBCUTANEOUS
     Route: 058
     Dates: start: 20040407, end: 20040408
  4. BUSERELIN ACETATE [Concomitant]

REACTIONS (4)
  - HYPERSENSITIVITY [None]
  - NAUSEA [None]
  - SWELLING [None]
  - URTICARIA GENERALISED [None]
